FAERS Safety Report 8135962-2 (Version None)
Quarter: 2012Q1

REPORT INFORMATION
  Report Type: 
  Country: None (occurrence: None)
  Receive Date: 20120214
  Receipt Date: 20120201
  Transmission Date: 20120608
  Serious: Yes (Death)
  Sender: FDA-Public Use
  Company Number: JP-TEVA-2011004695

PATIENT
  Sex: Female
  Weight: 42.4 kg

DRUGS (8)
  1. BENDAMUSTINE HCL [Suspect]
     Indication: B-CELL LYMPHOMA
     Route: 042
     Dates: start: 20110202, end: 20110203
  2. ETOPOSIDE [Concomitant]
     Dates: start: 20110405, end: 20110406
  3. RITUXIMAB [Suspect]
     Indication: B-CELL LYMPHOMA
     Route: 042
     Dates: start: 20110202, end: 20110316
  4. PAROXETINE HYDROCHLORIDE [Concomitant]
     Dates: start: 20110316
  5. BENDAMUSTINE HCL [Suspect]
     Route: 042
     Dates: start: 20110601, end: 20110602
  6. RITUXIMAB [Suspect]
     Route: 042
     Dates: start: 20110601
  7. SOBUZOXANE [Concomitant]
     Dates: start: 20110405, end: 20110406
  8. METENOLONE ACETATE [Concomitant]
     Dates: start: 20110311

REACTIONS (6)
  - BLOOD POTASSIUM DECREASED [None]
  - NEUTROPHIL COUNT DECREASED [None]
  - PLATELET COUNT DECREASED [None]
  - PROTEIN TOTAL DECREASED [None]
  - B-CELL LYMPHOMA [None]
  - LYMPHOCYTE COUNT DECREASED [None]
